FAERS Safety Report 11185673 (Version 2)
Quarter: 2015Q3

REPORT INFORMATION
  Report Type: Spontaneous
  Country: US (occurrence: US)
  Receive Date: 20150612
  Receipt Date: 20150709
  Transmission Date: 20151125
  Serious: Yes (Other)
  Sender: FDA-Public Use
  Company Number: US-INCYTE CORPORATION-2015IN002620

PATIENT
  Age: 58 Year
  Sex: Female
  Weight: 68.03 kg

DRUGS (16)
  1. PRAMIPEXOLE. [Concomitant]
     Active Substance: PRAMIPEXOLE
     Dosage: UNK
  2. ESTRADIOL TRANSDERMAL SYSTEM [Concomitant]
     Active Substance: ESTRADIOL
     Dosage: UNK
  3. JAKAFI [Suspect]
     Active Substance: RUXOLITINIB
     Indication: MYELOFIBROSIS
     Dosage: 5 MG, BID
     Route: 048
     Dates: start: 20150529
  4. ACETAMINOPHEN AND CODEINE [Concomitant]
     Active Substance: ACETAMINOPHEN\CODEINE PHOSPHATE
     Dosage: UNK
  5. SINGULAIR [Concomitant]
     Active Substance: MONTELUKAST SODIUM
     Dosage: UNK
  6. ALPRAZOLAM. [Concomitant]
     Active Substance: ALPRAZOLAM
     Dosage: UNK
  7. AMRIX [Concomitant]
     Active Substance: CYCLOBENZAPRINE HYDROCHLORIDE
     Dosage: UNK
  8. PHENERGAN [Concomitant]
     Active Substance: PROMETHAZINE HYDROCHLORIDE
     Dosage: UNK
  9. DIAZEPAM. [Concomitant]
     Active Substance: DIAZEPAM
     Dosage: UNK
  10. ZOFRAN [Concomitant]
     Active Substance: ONDANSETRON HYDROCHLORIDE
     Dosage: UNK
  11. ARMOUR THYROID [Concomitant]
     Active Substance: THYROID, PORCINE\THYROID, UNSPECIFIED
     Dosage: UNK
  12. PROGESTERONE. [Concomitant]
     Active Substance: PROGESTERONE
     Dosage: UNK
  13. NYSTATIN. [Concomitant]
     Active Substance: NYSTATIN
     Dosage: UNK
  14. ESTRADIOL. [Concomitant]
     Active Substance: ESTRADIOL
     Dosage: UNK
  15. FINACEA [Concomitant]
     Active Substance: AZELAIC ACID
     Dosage: UNK
  16. ONDANSETRON [Concomitant]
     Active Substance: ONDANSETRON
     Dosage: UNK

REACTIONS (2)
  - Haemoglobin decreased [Unknown]
  - Rectal haemorrhage [Unknown]

NARRATIVE: CASE EVENT DATE: 2015
